FAERS Safety Report 10155361 (Version 1)
Quarter: 2014Q2

REPORT INFORMATION
  Report Type: Spontaneous
  Country: US (occurrence: US)
  Receive Date: 20140506
  Receipt Date: 20140506
  Transmission Date: 20141212
  Serious: Yes (Other)
  Sender: FDA-Public Use
  Company Number: US-SHIRE-US201401845

PATIENT
  Age: 21 Year
  Sex: Female
  Weight: 54.42 kg

DRUGS (2)
  1. VYVANSE [Suspect]
     Indication: ATTENTION DEFICIT/HYPERACTIVITY DISORDER
     Dosage: 20 MG, 1X/DAY:QD
     Route: 048
     Dates: start: 2010, end: 20140430
  2. VITAMINS NOS [Concomitant]
     Indication: ATTENTION DEFICIT/HYPERACTIVITY DISORDER
     Dosage: UNK, UNKNOWN
     Route: 048

REACTIONS (5)
  - Drug dependence [Not Recovered/Not Resolved]
  - Depression [Not Recovered/Not Resolved]
  - Heart rate increased [Unknown]
  - Panic attack [Recovered/Resolved]
  - Fear [Not Recovered/Not Resolved]
